FAERS Safety Report 5513453-2 (Version None)
Quarter: 2007Q4

REPORT INFORMATION
  Report Type: 
  Country: None (occurrence: None)
  Receive Date: 20071112
  Receipt Date: 20071031
  Transmission Date: 20080405
  Serious: Yes (Hospitalization, Other)
  Sender: FDA-Public Use
  Company Number: CA-PFIZER INC-2007092025

PATIENT
  Age: 82 Year
  Sex: Female

DRUGS (1)
  1. DILANTIN [Suspect]
     Route: 048

REACTIONS (2)
  - ANTICONVULSANT DRUG LEVEL DECREASED [None]
  - CONVULSION [None]
